FAERS Safety Report 18735713 (Version 13)
Quarter: 2021Q4

REPORT INFORMATION
  Report Type: Spontaneous
  Country: CZ (occurrence: CZ)
  Receive Date: 20210113
  Receipt Date: 20211229
  Transmission Date: 20220303
  Serious: Yes (Hospitalization, Other)
  Sender: FDA-Public Use
  Company Number: CZ-MYLANLABS-2021M1001106

PATIENT
  Age: 45 Year
  Sex: Male

DRUGS (33)
  1. TOPIRAMATE [Suspect]
     Active Substance: TOPIRAMATE
     Indication: Epilepsy
     Dosage: 200 MILLIGRAM, QD
     Route: 048
  2. TOPIRAMATE [Suspect]
     Active Substance: TOPIRAMATE
     Indication: Drug therapy
  3. TOPIRAMATE [Suspect]
     Active Substance: TOPIRAMATE
     Indication: Depression
  4. TOPIRAMATE [Suspect]
     Active Substance: TOPIRAMATE
     Indication: Seizure
  5. TOPIRAMATE [Suspect]
     Active Substance: TOPIRAMATE
     Indication: Psychogenic seizure
  6. LEVETIRACETAM [Suspect]
     Active Substance: LEVETIRACETAM
     Indication: Seizure
     Dosage: UNK
     Route: 065
  7. LEVETIRACETAM [Suspect]
     Active Substance: LEVETIRACETAM
     Indication: Epilepsy
     Dosage: UNK
     Route: 065
  8. LEVETIRACETAM [Suspect]
     Active Substance: LEVETIRACETAM
     Indication: Depression
     Dosage: UNK
     Route: 065
  9. LEVETIRACETAM [Suspect]
     Active Substance: LEVETIRACETAM
     Indication: Psychogenic seizure
  10. LAMOTRIGINE [Suspect]
     Active Substance: LAMOTRIGINE
     Indication: Drug therapy
     Dosage: 400 MILLIGRAM, QD
     Route: 065
  11. LAMOTRIGINE [Suspect]
     Active Substance: LAMOTRIGINE
     Indication: Depression
  12. VALPROIC ACID [Suspect]
     Active Substance: VALPROIC ACID
     Indication: Epilepsy
     Dosage: UNK
  13. VALPROIC ACID [Suspect]
     Active Substance: VALPROIC ACID
     Indication: Depression
     Dosage: UNK
  14. VALPROIC ACID [Suspect]
     Active Substance: VALPROIC ACID
     Indication: Seizure
  15. CARBAMAZEPINE [Suspect]
     Active Substance: CARBAMAZEPINE
     Indication: Erectile dysfunction
     Dosage: UNK
     Route: 065
  16. CARBAMAZEPINE [Suspect]
     Active Substance: CARBAMAZEPINE
     Indication: Epilepsy
  17. CARBAMAZEPINE [Suspect]
     Active Substance: CARBAMAZEPINE
     Indication: Psychogenic seizure
  18. CARBAMAZEPINE [Suspect]
     Active Substance: CARBAMAZEPINE
     Indication: Seizure
  19. CARBAMAZEPINE [Suspect]
     Active Substance: CARBAMAZEPINE
     Indication: Epilepsy
  20. VALPROATE SODIUM [Suspect]
     Active Substance: VALPROATE SODIUM
     Indication: Weight increased
     Dosage: UNK
     Route: 065
  21. VALPROATE SODIUM [Suspect]
     Active Substance: VALPROATE SODIUM
     Indication: Epilepsy
  22. VALPROATE SODIUM [Suspect]
     Active Substance: VALPROATE SODIUM
     Indication: Psychogenic seizure
  23. VALPROATE SODIUM [Suspect]
     Active Substance: VALPROATE SODIUM
     Indication: Seizure
  24. VALPROATE SODIUM [Suspect]
     Active Substance: VALPROATE SODIUM
     Indication: Depression
  25. VALPROATE SODIUM [Suspect]
     Active Substance: VALPROATE SODIUM
     Indication: Epilepsy
  26. ESLICARBAZEPINE [Suspect]
     Active Substance: ESLICARBAZEPINE
     Indication: Epilepsy
     Dosage: UNK
     Route: 065
  27. ESLICARBAZEPINE [Suspect]
     Active Substance: ESLICARBAZEPINE
     Indication: Psychogenic seizure
  28. ESLICARBAZEPINE [Suspect]
     Active Substance: ESLICARBAZEPINE
     Indication: Seizure
  29. BRIVARACETAM [Concomitant]
     Active Substance: BRIVARACETAM
     Indication: Epilepsy
     Dosage: 25 MILLIGRAM, BID,25-0-25 MG
     Route: 065
  30. BRIVARACETAM [Concomitant]
     Active Substance: BRIVARACETAM
     Indication: Seizure
     Dosage: 100 MILLIGRAM, QD (50 MILLIGRAM, BID (INCREASED DOSE))
     Route: 065
  31. BRIVARACETAM [Concomitant]
     Active Substance: BRIVARACETAM
     Indication: Psychogenic seizure
     Dosage: 25 MILLIGRAM, BID,25-0-25 MG
     Route: 065
  32. TOPIRAMATE [Concomitant]
     Active Substance: TOPIRAMATE
     Indication: Psychogenic seizure
     Dosage: UNK UNK, QD
  33. TOPIRAMATE [Concomitant]
     Active Substance: TOPIRAMATE
     Indication: Epilepsy

REACTIONS (16)
  - Psychogenic seizure [Recovered/Resolved]
  - Condition aggravated [Recovered/Resolved]
  - Erectile dysfunction [Unknown]
  - Seizure [Not Recovered/Not Resolved]
  - Drug intolerance [Unknown]
  - Psychiatric symptom [Unknown]
  - Mental disorder [Recovered/Resolved]
  - Thinking abnormal [Unknown]
  - Weight increased [Unknown]
  - Drug ineffective for unapproved indication [Unknown]
  - Off label use [Unknown]
  - Epilepsy [Unknown]
  - Therapeutic product effect incomplete [Unknown]
  - Mental impairment [Unknown]
  - Product use in unapproved indication [Unknown]
  - Drug ineffective [Unknown]
